FAERS Safety Report 17656969 (Version 2)
Quarter: 2020Q2

REPORT INFORMATION
  Report Type: Spontaneous
  Country: US (occurrence: US)
  Receive Date: 20200410
  Receipt Date: 20200414
  Transmission Date: 20200713
  Serious: No
  Sender: FDA-Public Use
  Company Number: US-PFIZER INC-2020147035

PATIENT
  Age: 46 Year
  Sex: Male

DRUGS (3)
  1. BOSULIF [Suspect]
     Active Substance: BOSUTINIB MONOHYDRATE
     Indication: CHRONIC LYMPHOCYTIC LEUKAEMIA
     Dosage: 300 MG, DAILY
     Route: 048
     Dates: start: 201810
  2. SPRYCEL [Suspect]
     Active Substance: DASATINIB
     Dosage: UNK
  3. TASIGNA [Suspect]
     Active Substance: NILOTINIB
     Dosage: UNK

REACTIONS (1)
  - Neoplasm progression [Unknown]
